FAERS Safety Report 7866933-9 (Version None)
Quarter: 2011Q4

REPORT INFORMATION
  Report Type: 
  Country: None (occurrence: None)
  Receive Date: 20111028
  Receipt Date: 20111007
  Transmission Date: 20120403
  Serious: Yes (Hospitalization)
  Sender: FDA-Public Use
  Company Number: FR-ROCHE-785321

PATIENT
  Sex: Male
  Weight: 87 kg

DRUGS (4)
  1. MYCOPHENOLATE MOFETIL (CELLCEPT) [Suspect]
     Indication: ILL-DEFINED DISORDER
  2. CORTISONE ACETATE [Concomitant]
  3. MYCOPHENOLATE MOFETIL (CELLCEPT) [Suspect]
     Indication: HLA MARKER STUDY
     Dosage: DOSE: 4 TABLETS DAILY.
     Route: 048
  4. ATACAND [Concomitant]

REACTIONS (5)
  - VERTIGO POSITIONAL [None]
  - POLYNEUROPATHY [None]
  - RAYNAUD'S PHENOMENON [None]
  - HYPERURICAEMIA [None]
  - CALCULUS BLADDER [None]
